FAERS Safety Report 11222263 (Version 1)
Quarter: 2015Q2

REPORT INFORMATION
  Report Type: Report from Study
  Country: JP (occurrence: JP)
  Receive Date: 20150626
  Receipt Date: 20150626
  Transmission Date: 20150821
  Serious: Yes (Hospitalization)
  Sender: FDA-Public Use
  Company Number: JP-009507513-1407JPN002694

PATIENT
  Sex: Female

DRUGS (19)
  1. FOLLITROPIN ALFA [Concomitant]
     Active Substance: FOLLITROPIN
     Dosage: 150 UNDER1000UNIT, QD
     Route: 058
     Dates: start: 20100715, end: 20100716
  2. GANIREST [Suspect]
     Active Substance: GANIRELIX ACETATE
     Indication: PREVENTION OF PREMATURE OVULATION
     Dosage: 0.25 MG, QD
     Route: 058
     Dates: start: 20100717, end: 20100718
  3. LUTORAL (CHLORMADINONE ACETATE) [Concomitant]
     Active Substance: CHLORMADINONE ACETATE\MESTRANOL
     Dosage: 12 MG, QD
     Route: 048
     Dates: start: 20100917, end: 20101001
  4. BRICANYL [Concomitant]
     Active Substance: TERBUTALINE SULFATE
     Indication: IN VITRO FERTILISATION
     Dosage: 6 MG, QD, FORMULATION POR
     Route: 048
     Dates: start: 20100917, end: 20101001
  5. PROGE DEPOT [Concomitant]
     Dosage: 125 MG, QD
     Route: 030
     Dates: start: 20101027, end: 20101027
  6. FOLLITROPIN ALFA [Concomitant]
     Active Substance: FOLLITROPIN
     Dosage: 225 UNDER1000UNIT, QD
     Route: 058
     Dates: start: 20100713, end: 20100714
  7. FOLLITROPIN ALFA [Concomitant]
     Active Substance: FOLLITROPIN
     Dosage: 225 UNDER1000UNIT, QD
     Route: 058
     Dates: start: 20100717, end: 20100718
  8. GONADOTROPIN, CHORIONIC [Concomitant]
     Active Substance: CHORIOGONADOTROPIN ALFA
     Indication: OVULATION INDUCTION
     Dosage: 10000 THOUSAND-MILLION UNIT, QD
     Route: 051
     Dates: start: 20100719, end: 20100719
  9. DACTIL [Concomitant]
     Indication: IN VITRO FERTILISATION
     Dosage: 150 MG, QD, FORMULATION POR
     Route: 048
     Dates: start: 20100917, end: 20101104
  10. VITAMIN E [Concomitant]
     Active Substance: .ALPHA.-TOCOPHEROL
     Indication: IN VITRO FERTILISATION
     Dosage: 150 MG, QD
     Route: 048
     Dates: start: 20100917, end: 20101104
  11. BRICANYL [Concomitant]
     Active Substance: TERBUTALINE SULFATE
     Dosage: 6 MG, QD, FORMULATION POR
     Route: 048
     Dates: start: 20101008, end: 20101027
  12. PROGE DEPOT [Concomitant]
     Dosage: 125 MG, QD
     Route: 030
     Dates: start: 20101006, end: 20101006
  13. PROGE DEPOT [Concomitant]
     Dosage: 125 MG, QD
     Route: 030
     Dates: start: 20101020, end: 20101020
  14. FOLLITROPIN ALFA [Concomitant]
     Active Substance: FOLLITROPIN
     Indication: IN VITRO FERTILISATION
     Dosage: 300 UNDER1000UNIT, QD
     Route: 058
     Dates: start: 20100712, end: 20100712
  15. BAYASPIRIN [Concomitant]
     Active Substance: ASPIRIN
     Indication: IN VITRO FERTILISATION
     Dosage: 100 MG, QD
     Route: 048
     Dates: start: 20100917, end: 20101104
  16. PROGE DEPOT [Concomitant]
     Indication: IN VITRO FERTILISATION
     Dosage: 125 MG, QD
     Route: 030
     Dates: start: 20100917, end: 20100917
  17. LUTORAL (CHLORMADINONE ACETATE) [Concomitant]
     Active Substance: CHLORMADINONE ACETATE\MESTRANOL
     Indication: IN VITRO FERTILISATION
     Dosage: 6 MG, QD, FORMULATION POR
     Route: 048
     Dates: start: 20101002, end: 20101104
  18. PROGE DEPOT [Concomitant]
     Dosage: 125 MG, QD
     Route: 030
     Dates: start: 20101001, end: 20101001
  19. PROGE DEPOT [Concomitant]
     Dosage: 125 MG, QD
     Route: 030
     Dates: start: 20101013, end: 20101013

REACTIONS (1)
  - Cervical incompetence [Recovered/Resolved]
